FAERS Safety Report 4755306-3 (Version None)
Quarter: 2005Q3

REPORT INFORMATION
  Report Type: 
  Country: None (occurrence: None)
  Receive Date: 20050829
  Receipt Date: 20050414
  Transmission Date: 20060218
  Serious: Yes (Death, Hospitalization)
  Sender: FDA-Public Use
  Company Number: US-MERCK-0504USA02988

PATIENT
  Age: 69 Year
  Sex: Female
  Weight: 59 kg

DRUGS (8)
  1. VIOXX [Suspect]
     Indication: ARTHRITIS
     Route: 048
     Dates: start: 20030501, end: 20040930
  2. VIOXX [Suspect]
     Indication: PAIN
     Route: 048
     Dates: start: 20030501, end: 20040930
  3. CELEXA [Concomitant]
     Indication: DEPRESSION
     Route: 065
  4. INDERAL [Concomitant]
     Indication: HYPERTENSION
     Route: 065
  5. ACIPHEX [Concomitant]
     Indication: DYSPEPSIA
     Route: 065
  6. TEMAZEPAM [Concomitant]
     Indication: INSOMNIA
     Route: 065
  7. TRIAMTERENE [Concomitant]
     Route: 065
  8. CARTIA XT [Concomitant]
     Route: 065

REACTIONS (10)
  - ADVERSE EVENT [None]
  - ATHEROSCLEROSIS [None]
  - CARDIAC FAILURE CONGESTIVE [None]
  - CORONARY ARTERY DISEASE [None]
  - DYSPEPSIA [None]
  - GALLBLADDER OPERATION [None]
  - GASTROOESOPHAGEAL REFLUX DISEASE [None]
  - INJURY [None]
  - MYOCARDIAL INFARCTION [None]
  - OSTEOARTHRITIS [None]
